FAERS Safety Report 17316989 (Version 2)
Quarter: 2020Q1

REPORT INFORMATION
  Report Type: Spontaneous
  Country: US (occurrence: US)
  Receive Date: 20200124
  Receipt Date: 20200304
  Transmission Date: 20200409
  Serious: No
  Sender: FDA-Public Use
  Company Number: US-ASTRAZENECA-2020SE00457

PATIENT
  Sex: Female
  Weight: 89.8 kg

DRUGS (3)
  1. SYMBICORT [Suspect]
     Active Substance: BUDESONIDE\FORMOTEROL FUMARATE DIHYDRATE
     Indication: EMPHYSEMA
     Dosage: 160/4.5MCG 2 PUFFS TWICE A DAY
     Route: 055
  2. SYMBICORT [Suspect]
     Active Substance: BUDESONIDE\FORMOTEROL FUMARATE DIHYDRATE
     Indication: CHRONIC OBSTRUCTIVE PULMONARY DISEASE
     Dosage: 160/4.5MCG 2 PUFFS TWICE A DAY
     Route: 055
  3. SPIRIVA [Concomitant]
     Active Substance: TIOTROPIUM BROMIDE MONOHYDRATE
     Route: 055

REACTIONS (9)
  - Product taste abnormal [Unknown]
  - Fatigue [Unknown]
  - Wheezing [Unknown]
  - Product packaging quantity issue [Unknown]
  - Respiration abnormal [Unknown]
  - Dyspnoea [Unknown]
  - Product storage error [Unknown]
  - Wrong technique in product usage process [Unknown]
  - Intentional product misuse [Unknown]
